FAERS Safety Report 18873787 (Version 7)
Quarter: 2021Q3

REPORT INFORMATION
  Report Type: Report from Study
  Country: CN (occurrence: CN)
  Receive Date: 20210210
  Receipt Date: 20210708
  Transmission Date: 20211014
  Serious: Yes (Death, Other)
  Sender: FDA-Public Use
  Company Number: CN-EISAI MEDICAL RESEARCH-EC-2021-087734

PATIENT
  Age: 63 Year
  Sex: Female
  Weight: 65 kg

DRUGS (21)
  1. FELODIPINE. [Concomitant]
     Active Substance: FELODIPINE
     Dates: start: 20201211, end: 20201226
  2. SODIUM BICARBONATE. [Concomitant]
     Active Substance: SODIUM BICARBONATE
     Dates: start: 20201231, end: 20210113
  3. GLYCERIN. [Concomitant]
     Active Substance: GLYCERIN
     Dates: start: 20210101, end: 20210101
  4. TATHION [Concomitant]
     Active Substance: GLUTATHIONE
     Dates: start: 20201231, end: 20210113
  5. SI MO TANG [Concomitant]
     Dates: start: 20210101, end: 20210107
  6. CEFTRIAXONE. [Concomitant]
     Active Substance: CEFTRIAXONE
     Dates: start: 20201220, end: 20201225
  7. FEBUXOSTAT. [Concomitant]
     Active Substance: FEBUXOSTAT
     Dates: start: 20201231, end: 20210113
  8. MEPERIDINE HYDROCHLORIDE. [Concomitant]
     Active Substance: MEPERIDINE HYDROCHLORIDE
     Route: 042
     Dates: start: 20210104, end: 20210104
  9. LENVATINIB [Suspect]
     Active Substance: LENVATINIB
     Route: 048
     Dates: start: 20201214, end: 20201224
  10. LENVATINIB [Suspect]
     Active Substance: LENVATINIB
     Route: 048
     Dates: start: 20210114
  11. DIHYDROCODEINE BITARTRATE;PARACETAMOL [Concomitant]
     Active Substance: ACETAMINOPHEN\DIHYDROCODEINE BITARTRATE
     Dates: start: 202008, end: 20201226
  12. BENAZEPRIL HYDROCHLORIDE. [Concomitant]
     Active Substance: BENAZEPRIL HYDROCHLORIDE
     Dates: start: 20201211, end: 20201226
  13. PEMBROLIZUMAB. [Suspect]
     Active Substance: PEMBROLIZUMAB
     Route: 041
     Dates: start: 20201211, end: 20201211
  14. LENVATINIB [Suspect]
     Active Substance: LENVATINIB
     Indication: ENDOMETRIAL CANCER
     Route: 048
     Dates: start: 20201120, end: 20201210
  15. LACTULOSE. [Concomitant]
     Active Substance: LACTULOSE
     Dates: start: 20210101, end: 20210126
  16. BUPLEURUM CHINENSE [Concomitant]
     Dates: start: 20201231, end: 20210113
  17. GAI SAN CHUN [Concomitant]
     Dates: start: 20201231, end: 20210113
  18. PEMBROLIZUMAB. [Suspect]
     Active Substance: PEMBROLIZUMAB
     Indication: ENDOMETRIAL CANCER
     Route: 041
     Dates: start: 20201120, end: 20201120
  19. LEVOTHYROXINE SODIUM. [Concomitant]
     Active Substance: LEVOTHYROXINE SODIUM
     Dates: start: 20201216, end: 20201226
  20. OXYCODONE HYDROCHLORIDE. [Concomitant]
     Active Substance: OXYCODONE HYDROCHLORIDE
     Dates: start: 20201216, end: 20210104
  21. SHEN KANG [ASTRAGALUS MONGHOLICUS ROOT;CARTHAMUS TINCTORIUS FLOWER;RHE [Concomitant]
     Route: 042
     Dates: start: 20201223, end: 20210113

REACTIONS (1)
  - Deep vein thrombosis [Not Recovered/Not Resolved]

NARRATIVE: CASE EVENT DATE: 20210104
